FAERS Safety Report 7703409-3 (Version None)
Quarter: 2011Q3

REPORT INFORMATION
  Report Type: 
  Country: None (occurrence: None)
  Receive Date: 20110823
  Receipt Date: 20110823
  Transmission Date: 20111222
  Serious: Yes (Hospitalization)
  Sender: FDA-Public Use
  Company Number: None

PATIENT
  Age: 65 Year
  Sex: Female
  Weight: 97.975 kg

DRUGS (4)
  1. AVASTIN [Suspect]
     Indication: BREAST CANCER METASTATIC
     Dosage: 15 MG/KG
     Route: 041
     Dates: start: 20110809, end: 20110809
  2. AVASTIN [Concomitant]
  3. HERCEPTIN [Concomitant]
  4. TAXOTERE [Concomitant]

REACTIONS (3)
  - DIARRHOEA [None]
  - VOMITING [None]
  - NAUSEA [None]
